FAERS Safety Report 15058428 (Version 1)
Quarter: 2018Q2

REPORT INFORMATION
  Report Type: Spontaneous
  Country: FR (occurrence: FR)
  Receive Date: 20180625
  Receipt Date: 20180625
  Transmission Date: 20180711
  Serious: Yes (Other)
  Sender: FDA-Public Use
  Company Number: FR-CONCORDIA PHARMACEUTICALS INC.-E2B_00012833

PATIENT
  Age: 45 Year
  Sex: Female
  Weight: 70 kg

DRUGS (1)
  1. PREDNISOLONE. [Suspect]
     Active Substance: PREDNISOLONE
     Indication: ASTHMATIC CRISIS
     Route: 048
     Dates: start: 20180401, end: 20180407

REACTIONS (1)
  - Vulval abscess [Recovered/Resolved]

NARRATIVE: CASE EVENT DATE: 20180408
